FAERS Safety Report 14242219 (Version 1)
Quarter: 2017Q4

REPORT INFORMATION
  Report Type: Spontaneous
  Country: US (occurrence: US)
  Receive Date: 20171130
  Receipt Date: 20171130
  Transmission Date: 20180321
  Serious: Yes (Disabling)
  Sender: FDA-Public Use
  Company Number: None

PATIENT
  Age: 62 Year
  Sex: Female
  Weight: 63.9 kg

DRUGS (17)
  1. ULTRAM [Concomitant]
     Active Substance: TRAMADOL HYDROCHLORIDE
  2. VALIUM [Concomitant]
     Active Substance: DIAZEPAM
  3. IRON [Concomitant]
     Active Substance: IRON
  4. MVI [Concomitant]
     Active Substance: VITAMINS
  5. ALEVE IBUPROFEN [Concomitant]
  6. PHENERGAN [Concomitant]
     Active Substance: PROMETHAZINE HYDROCHLORIDE
  7. VICTOZA [Suspect]
     Active Substance: LIRAGLUTIDE
     Indication: DIABETES MELLITUS
     Dosage: QUANTITY:1 INJECTION(S);?
     Route: 058
     Dates: start: 20170522, end: 20170623
  8. TYLENOL [Concomitant]
     Active Substance: ACETAMINOPHEN
  9. LEVEMIR [Concomitant]
     Active Substance: INSULIN DETEMIR
  10. CRESTOR [Concomitant]
     Active Substance: ROSUVASTATIN CALCIUM
  11. CLONAZEPAM. [Concomitant]
     Active Substance: CLONAZEPAM
  12. PROZAC [Concomitant]
     Active Substance: FLUOXETINE HYDROCHLORIDE
  13. BILATERAL HEARING AIDS [Concomitant]
  14. VITAMIN D3 [Concomitant]
     Active Substance: CHOLECALCIFEROL
  15. FLONASE [Concomitant]
     Active Substance: FLUTICASONE PROPIONATE
  16. PRILOSEC [Concomitant]
     Active Substance: OMEPRAZOLE MAGNESIUM
  17. VITAMIN C [Concomitant]
     Active Substance: ASCORBIC ACID

REACTIONS (8)
  - Deafness [None]
  - Abdominal pain [None]
  - Sinusitis [None]
  - Nausea [None]
  - Upper respiratory tract infection [None]
  - Gastric disorder [None]
  - Diarrhoea [None]
  - Asthenia [None]

NARRATIVE: CASE EVENT DATE: 20170522
